FAERS Safety Report 4531873-X (Version None)
Quarter: 2004Q4

REPORT INFORMATION
  Report Type: 
  Country: None (occurrence: None)
  Receive Date: 20041220
  Receipt Date: 20041213
  Transmission Date: 20050328
  Serious: Yes (Hospitalization)
  Sender: FDA-Public Use
  Company Number: BR-JNJFOC-20041204135

PATIENT
  Age: 19 Year
  Sex: Male
  Weight: 58 kg

DRUGS (1)
  1. DURAGESIC [Suspect]
     Indication: BACK PAIN
     Route: 062

REACTIONS (3)
  - BLOOD PRESSURE DECREASED [None]
  - MALAISE [None]
  - MEDICATION ERROR [None]
